FAERS Safety Report 5155325-1 (Version None)
Quarter: 2006Q4

REPORT INFORMATION
  Report Type: 
  Country: None (occurrence: None)
  Receive Date: 20061121
  Receipt Date: 20060927
  Transmission Date: 20070319
  Serious: Yes (Other)
  Sender: FDA-Public Use
  Company Number: 2006UW18944

PATIENT
  Age: 13 Year
  Sex: Male

DRUGS (2)
  1. SEROQUEL [Suspect]
     Indication: ANXIETY
     Route: 048
     Dates: start: 20060608, end: 20060609
  2. SEROQUEL [Suspect]
     Indication: DELUSION
     Route: 048
     Dates: start: 20060608, end: 20060609

REACTIONS (4)
  - AGITATION [None]
  - DYSKINESIA [None]
  - GAIT DISTURBANCE [None]
  - SOMNOLENCE [None]
